FAERS Safety Report 9630024 (Version 7)
Quarter: 2014Q2

REPORT INFORMATION
  Report Type: Spontaneous
  Country: GB (occurrence: GB)
  Receive Date: 20131017
  Receipt Date: 20140410
  Transmission Date: 20141212
  Serious: Yes (Death, Hospitalization, Other)
  Sender: FDA-Public Use
  Company Number: GB-ABBVIE-13P-167-1069638-00

PATIENT
  Age: 87 Year
  Sex: Male
  Weight: 68 kg

DRUGS (11)
  1. CLARITHROMYCIN [Suspect]
     Indication: STAPHYLOCOCCAL INFECTION
     Route: 048
     Dates: start: 20121101, end: 20130211
  2. CLARITHROMYCIN [Interacting]
     Indication: OSTEOMYELITIS
  3. SIMVASTATIN [Interacting]
     Indication: HYPERCHOLESTEROLAEMIA
     Route: 048
     Dates: start: 2012
  4. SIMVASTATIN [Interacting]
     Route: 048
     Dates: end: 20130218
  5. FUSIDIC ACID [Suspect]
     Indication: STAPHYLOCOCCAL INFECTION
     Dosage: 1500 MILLIGRAM, 3 DAYS
     Route: 048
     Dates: start: 20121220, end: 20130211
  6. FUSIDIC ACID [Suspect]
     Indication: OSTEOMYELITIS
  7. LANSOPRAZOLE [Suspect]
     Indication: PRODUCT USED FOR UNKNOWN INDICATION
  8. ASPIRIN [Concomitant]
     Indication: PRODUCT USED FOR UNKNOWN INDICATION
  9. LANTUS [Concomitant]
     Indication: PRODUCT USED FOR UNKNOWN INDICATION
  10. ACETYLSALICYLIC ACID [Concomitant]
     Indication: PRODUCT USED FOR UNKNOWN INDICATION
  11. INSULIN GLARGINE [Concomitant]
     Indication: PRODUCT USED FOR UNKNOWN INDICATION

REACTIONS (6)
  - Sepsis [Fatal]
  - Rhabdomyolysis [Fatal]
  - Renal failure acute [Fatal]
  - Drug interaction [Fatal]
  - Incorrect drug administration duration [Fatal]
  - Medication error [Fatal]
